FAERS Safety Report 4280358-7 (Version None)
Quarter: 2004Q1

REPORT INFORMATION
  Report Type: 
  Country: None (occurrence: None)
  Receive Date: 20040127
  Receipt Date: 20040115
  Transmission Date: 20041129
  Serious: Yes (Congenital Anomaly)
  Sender: FDA-Public Use
  Company Number: 2004002883

PATIENT
  Age: 1 Day
  Sex: Male

DRUGS (1)
  1. SUDAFED SINUS + ALLERGY (CHLORPHENIRAMINE, PSEUDOEPHEDRINE) [Suspect]
     Dosage: PLACENTAL
     Route: 064
     Dates: start: 20020301, end: 20020301

REACTIONS (4)
  - BODY FAT DISORDER [None]
  - CONGENITAL FOOT MALFORMATION [None]
  - FOOT AMPUTATION [None]
  - MATERNAL DRUGS AFFECTING FOETUS [None]
